FAERS Safety Report 6959528-2 (Version None)
Quarter: 2010Q3

REPORT INFORMATION
  Report Type: 
  Country: None (occurrence: None)
  Receive Date: 20100827
  Receipt Date: 20100818
  Transmission Date: 20110219
  Serious: Yes (Hospitalization, Disabling, Other)
  Sender: FDA-Public Use
  Company Number: 2010P1000640

PATIENT
  Age: 26 Year
  Sex: Female

DRUGS (2)
  1. COLCHICINE [Suspect]
     Indication: ACCIDENTAL EXPOSURE
     Dosage: 10-30 TABLETS; X1; PO
     Route: 048
     Dates: start: 20100731, end: 20100731
  2. CLARITIN [Suspect]
     Dosage: ; PO
     Route: 048
     Dates: start: 20100731, end: 20100731

REACTIONS (18)
  - ACCIDENTAL EXPOSURE [None]
  - AGITATION [None]
  - ALOPECIA [None]
  - ANAEMIA [None]
  - BACK DISORDER [None]
  - BLOOD CALCIUM ABNORMAL [None]
  - BLOOD POTASSIUM ABNORMAL [None]
  - CONVULSION [None]
  - DIARRHOEA [None]
  - EPISTAXIS [None]
  - GASTROINTESTINAL DISORDER [None]
  - HEART RATE INCREASED [None]
  - HEPATITIS [None]
  - PHENYLKETONURIA [None]
  - RENAL FAILURE [None]
  - RENAL PAIN [None]
  - SEPSIS [None]
  - URINARY TRACT INFECTION [None]
